FAERS Safety Report 9603580 (Version 1)
Quarter: 2013Q4

REPORT INFORMATION
  Report Type: Spontaneous
  Country: US (occurrence: US)
  Receive Date: 20131007
  Receipt Date: 20131007
  Transmission Date: 20140711
  Serious: No
  Sender: FDA-Public Use
  Company Number: US-PFIZER INC-2013284937

PATIENT
  Sex: Female

DRUGS (4)
  1. NEURONTIN [Suspect]
     Dosage: UNK
  2. PROVERA [Suspect]
     Dosage: UNK
  3. ZOLOFT [Suspect]
     Dosage: UNK
  4. DETROL LA [Suspect]
     Dosage: UNK

REACTIONS (1)
  - Balance disorder [Unknown]
